FAERS Safety Report 9305002 (Version 2)
Quarter: 2013Q2

REPORT INFORMATION
  Report Type: Spontaneous
  Country: JP (occurrence: JP)
  Receive Date: 20130523
  Receipt Date: 20130628
  Transmission Date: 20140414
  Serious: Yes (Hospitalization, Other)
  Sender: FDA-Public Use
  Company Number: JP-JNJFOC-20130506731

PATIENT
  Age: 58 Year
  Sex: Female
  Weight: 49 kg

DRUGS (10)
  1. RISPERDAL [Suspect]
     Indication: SCHIZOPHRENIA
     Route: 048
     Dates: start: 20130418
  2. RISPERDAL [Suspect]
     Indication: SCHIZOPHRENIA
     Route: 048
     Dates: start: 20130404, end: 20130417
  3. RISPERDAL [Suspect]
     Indication: SCHIZOPHRENIA
     Route: 048
     Dates: start: 201210, end: 201304
  4. CYSVON [Concomitant]
     Dosage: BEFORE GOING TO BED
     Route: 048
  5. ZOPICOOL [Concomitant]
     Dosage: BEFORE GOING TO BED
     Route: 048
  6. AMLODIPINE [Concomitant]
     Dosage: MORNING
     Route: 048
  7. FERROMIA [Concomitant]
     Dosage: MORNING
     Route: 048
  8. DIBETOS B [Concomitant]
     Dosage: MORNING
     Route: 048
  9. SENNARIDE [Concomitant]
     Dosage: AT THE TIME OF CONSTIPATION
     Route: 048
  10. MAGMITT [Concomitant]
     Indication: CONSTIPATION
     Dosage: AT THE TIME OF CONSTIPATION
     Route: 048

REACTIONS (2)
  - Postrenal failure [Recovering/Resolving]
  - Urinary retention [Not Recovered/Not Resolved]
